FAERS Safety Report 11376740 (Version 1)
Quarter: 2015Q3

REPORT INFORMATION
  Report Type: Spontaneous
  Country: US (occurrence: US)
  Receive Date: 20150813
  Receipt Date: 20150813
  Transmission Date: 20151125
  Serious: No
  Sender: FDA-Public Use
  Company Number: US-ASTRAZENECA-2015SE76039

PATIENT
  Age: 70 Year
  Sex: Female

DRUGS (1)
  1. BYDUREON [Suspect]
     Active Substance: EXENATIDE
     Indication: TYPE 2 DIABETES MELLITUS
     Route: 058

REACTIONS (5)
  - Urine odour abnormal [Unknown]
  - Chromaturia [Unknown]
  - Dyspepsia [Unknown]
  - Muscle spasms [Unknown]
  - Injection site urticaria [Unknown]
